FAERS Safety Report 6121838-9 (Version None)
Quarter: 2009Q1

REPORT INFORMATION
  Report Type: 
  Country: None (occurrence: None)
  Receive Date: 20090313
  Receipt Date: 20090226
  Transmission Date: 20090719
  Serious: Yes (Hospitalization)
  Sender: FDA-Public Use
  Company Number: 2009S1003557

PATIENT
  Age: 76 Year
  Sex: Male

DRUGS (8)
  1. BISOPROLOL FUMARATE [Suspect]
     Indication: HYPERTENSION
     Dosage: 2.5 MG; DAILY; ORAL
     Route: 048
  2. SPIRONOLACTONE [Suspect]
     Indication: OEDEMA
     Dosage: 12.5 MG; DAILY; ORAL
     Route: 048
     Dates: end: 20081117
  3. ASPIRIN [Concomitant]
  4. ATACAND [Concomitant]
  5. DIGITOXIN [Concomitant]
  6. INEGY [Concomitant]
  7. OMEPRAZOLE [Concomitant]
  8. TORASEMIDE [Concomitant]

REACTIONS (1)
  - HYPERKALAEMIA [None]
